FAERS Safety Report 14354429 (Version 1)
Quarter: 2018Q1

REPORT INFORMATION
  Report Type: Report from Study
  Country: None (occurrence: US)
  Receive Date: 20180105
  Receipt Date: 20180105
  Transmission Date: 20180509
  Serious: Yes (Hospitalization, Other)
  Sender: FDA-Public Use
  Company Number: US-ABBVIE-18P-163-2208933-00

PATIENT
  Sex: Female
  Weight: 106.69 kg

DRUGS (2)
  1. SYNTHROID [Suspect]
     Active Substance: LEVOTHYROXINE SODIUM
     Route: 048
     Dates: start: 1996
  2. SYNTHROID [Suspect]
     Active Substance: LEVOTHYROXINE SODIUM
     Indication: HYPOTHYROIDISM
     Route: 048
     Dates: start: 1988

REACTIONS (5)
  - Limb crushing injury [Recovered/Resolved]
  - Patient-device incompatibility [Recovered/Resolved]
  - Gait deviation [Recovered/Resolved]
  - Pneumonia [Recovered/Resolved]
  - Transplant rejection [Recovered/Resolved]

NARRATIVE: CASE EVENT DATE: 2002
